FAERS Safety Report 8784298 (Version 2)
Quarter: 2012Q4

REPORT INFORMATION
  Report Type: 
  Country: US (occurrence: US)
  Receive Date: 20120913
  Receipt Date: 20121023
  Transmission Date: 20130627
  Serious: No
  Sender: FDA-Public Use
  Company Number: US-PFIZER INC-2012224854

PATIENT
  Age: 70 Year
  Sex: Female
  Weight: 83.4 kg

DRUGS (2)
  1. NITROSTAT [Suspect]
     Indication: CHEST PAIN
     Dosage: UNK, as needed
     Route: 060
  2. NITROSTAT [Suspect]
     Indication: DYSPNOEA

REACTIONS (1)
  - Drug ineffective [Not Recovered/Not Resolved]
